FAERS Safety Report 14314973 (Version 2)
Quarter: 2017Q4

REPORT INFORMATION
  Report Type: Spontaneous
  Country: US (occurrence: US)
  Receive Date: 20171221
  Receipt Date: 20171227
  Transmission Date: 20180321
  Serious: Yes (Other)
  Sender: FDA-Public Use
  Company Number: US-BEH-2017086101

PATIENT
  Sex: Female

DRUGS (2)
  1. HUMAN IMMUNOGLOBULIN (NC) [Suspect]
     Active Substance: HUMAN IMMUNOGLOBULIN G
     Indication: PRODUCT USED FOR UNKNOWN INDICATION
     Dosage: 12 MG, UNK
     Route: 065
  2. CELLCEPT [Suspect]
     Active Substance: MYCOPHENOLATE MOFETIL\MYCOPHENOLATE MOFETIL HYDROCHLORIDE
     Indication: PRODUCT USED FOR UNKNOWN INDICATION

REACTIONS (10)
  - Pulmonary embolism [Unknown]
  - Haematoma [Unknown]
  - Herpes zoster [Unknown]
  - Mass [Unknown]
  - Neuropathy peripheral [Unknown]
  - Systemic lupus erythematosus [Unknown]
  - Peripheral swelling [Unknown]
  - Pneumonia [Unknown]
  - Contusion [Unknown]
  - Loss of consciousness [Unknown]
